FAERS Safety Report 6547891 (Version 4)
Quarter: 2015Q2

REPORT INFORMATION
  Report Type: Report from Study
  Country: US (occurrence: US)
  Receive Date: 20080128
  Receipt Date: 20150428
  Transmission Date: 20150821
  Serious: Yes (Hospitalization)
  Sender: FDA-Public Use
  Company Number: 2008BI001459

PATIENT
  Age: 52 Year
  Sex: Female
  Weight: 110 kg

DRUGS (7)
  1. NORETHINDRONE ACETATE. [Concomitant]
     Active Substance: NORETHINDRONE ACETATE
     Indication: PRODUCT USED FOR UNKNOWN INDICATION
  2. AVONEX [Suspect]
     Active Substance: INTERFERON BETA-1A
     Indication: MULTIPLE SCLEROSIS
     Route: 030
     Dates: start: 20041027, end: 20131122
  3. ACETAMINOPHEN. [Concomitant]
     Active Substance: ACETAMINOPHEN
     Indication: PRODUCT USED FOR UNKNOWN INDICATION
  4. LIPITOR [Concomitant]
     Active Substance: ATORVASTATIN CALCIUM
     Indication: PRODUCT USED FOR UNKNOWN INDICATION
  5. IBUPROFEN. [Concomitant]
     Active Substance: IBUPROFEN
     Indication: PRODUCT USED FOR UNKNOWN INDICATION
  6. DIPHENHYDRAMINE [Concomitant]
     Active Substance: DIPHENHYDRAMINE
     Indication: PRODUCT USED FOR UNKNOWN INDICATION
  7. LEVOTHYROXINE [Concomitant]
     Active Substance: LEVOTHYROXINE
     Indication: PRODUCT USED FOR UNKNOWN INDICATION

REACTIONS (16)
  - Klebsiella infection [Unknown]
  - Endometrial adenocarcinoma [Recovered/Resolved]
  - Gastrooesophageal reflux disease [Unknown]
  - Escherichia urinary tract infection [Unknown]
  - Post procedural pulmonary embolism [Recovered/Resolved]
  - Thrombosis [Recovered/Resolved]
  - Muscle atrophy [Recovered/Resolved]
  - General physical health deterioration [Recovered/Resolved]
  - Pneumothorax [Unknown]
  - Haematocrit decreased [Unknown]
  - Pneumonia [Recovered/Resolved]
  - Urine output decreased [Unknown]
  - Pyrexia [Unknown]
  - Enteritis infectious [Recovered/Resolved]
  - Feeling abnormal [Unknown]
  - Rash generalised [Unknown]

NARRATIVE: CASE EVENT DATE: 200712
